FAERS Safety Report 9260169 (Version 1)
Quarter: 2013Q2

REPORT INFORMATION
  Report Type: Spontaneous
  Country: US (occurrence: US)
  Receive Date: 20130429
  Receipt Date: 20130429
  Transmission Date: 20140414
  Serious: No
  Sender: FDA-Public Use
  Company Number: US-PFIZER INC-2013133360

PATIENT
  Age: 42 Year
  Sex: Male
  Weight: 83.45 kg

DRUGS (7)
  1. CHANTIX [Suspect]
     Indication: SMOKING CESSATION THERAPY
     Dosage: 0.5 MG, 1X/DAY
     Route: 048
     Dates: start: 2007
  2. CHANTIX [Suspect]
     Dosage: UNK
     Route: 048
     Dates: start: 200104
  3. LITHIUM [Concomitant]
     Dosage: UNK
  4. ZOLOFT [Concomitant]
     Dosage: UNK
  5. CARVEDILOL [Concomitant]
     Dosage: UNK
  6. ROPINIROLE [Concomitant]
     Indication: RESTLESS LEGS SYNDROME
     Dosage: UNK
  7. METHYLPHENIDATE [Concomitant]
     Dosage: UNK

REACTIONS (1)
  - Therapeutic response unexpected [Unknown]
